FAERS Safety Report 4345023-6 (Version None)
Quarter: 2004Q2

REPORT INFORMATION
  Report Type: 
  Country: None (occurrence: None)
  Receive Date: 20040422
  Receipt Date: 20040422
  Transmission Date: 20050107
  Serious: Yes (Life-Threatening, Hospitalization, Disabling)
  Sender: FDA-Public Use
  Company Number: None

PATIENT
  Age: 74 Year
  Sex: Male
  Weight: 121.564 kg

DRUGS (1)
  1. SIROLIMUS CORDIS CYPHER CORONARY STENT [Suspect]
     Indication: CORONARY ARTERY DISEASE
     Dosage: 2 INTRACORONARY
     Route: 022
     Dates: start: 20031231, end: 20040421

REACTIONS (3)
  - ACUTE MYOCARDIAL INFARCTION [None]
  - CARDIOGENIC SHOCK [None]
  - STENT OCCLUSION [None]
